FAERS Safety Report 7338116-2 (Version None)
Quarter: 2011Q1

REPORT INFORMATION
  Report Type: 
  Country: None (occurrence: None)
  Receive Date: 20110308
  Receipt Date: 20110301
  Transmission Date: 20110831
  Serious: Yes (Hospitalization)
  Sender: FDA-Public Use
  Company Number: PHHO2008DE06915

PATIENT
  Sex: Male
  Weight: 90 kg

DRUGS (2)
  1. SUNITINIB MALATE [Concomitant]
     Indication: METASTATIC RENAL CELL CARCINOMA
     Dosage: UNK
     Dates: start: 20071030, end: 20071126
  2. AREDIA [Suspect]
     Dosage: UNK
     Route: 042
     Dates: start: 20060501, end: 20071126

REACTIONS (4)
  - IMPAIRED HEALING [None]
  - SURGERY [None]
  - OSTEONECROSIS OF JAW [None]
  - TOOTHACHE [None]
